FAERS Safety Report 9023480 (Version 1)
Quarter: 2013Q1

REPORT INFORMATION
  Report Type: Spontaneous
  Country: US (occurrence: US)
  Receive Date: 20130121
  Receipt Date: 20130121
  Transmission Date: 20140127
  Serious: No
  Sender: FDA-Public Use
  Company Number: US-OPTIMER PHARMACEUTICALS, INC.-20120129

PATIENT
  Age: 84 None
  Sex: Female

DRUGS (14)
  1. DIFICID [Suspect]
     Indication: CLOSTRIDIUM DIFFICILE COLITIS
     Dosage: 200 MG, BID
     Route: 048
     Dates: start: 2012, end: 20120911
  2. ASPIRIN [Concomitant]
     Dosage: 325 MG, QD
     Route: 065
  3. CALCIUM [Concomitant]
     Dosage: UNK UNK, QD
     Route: 065
  4. LASIX [Concomitant]
     Dosage: 40 MG, PRN
     Route: 065
  5. PAXIL [Concomitant]
     Dosage: 20 MG, QD
     Route: 065
  6. HALCION [Concomitant]
     Dosage: 0.5 MG, PRN BEDTIME
     Route: 065
  7. SYNTHROID [Concomitant]
     Dosage: 100 MCG DAILY
     Route: 065
  8. ALBUTEROL SULFATE [Concomitant]
     Dosage: UNK
     Route: 065
  9. FENTANYL [Concomitant]
     Dosage: 25 MCG PATCH
     Route: 062
  10. LISINOPRIL AND HYDROCHLOROTHIAZIDE [Concomitant]
     Dosage: 1 TABLET, QD
     Route: 065
  11. POTASSIUM [Concomitant]
     Dosage: 20 MEQ, UNK
     Route: 065
  12. VERAPAMIL [Concomitant]
     Dosage: UNK
     Route: 065
  13. LOVASTATIN [Concomitant]
     Dosage: 20 MG QHS
  14. PRILOSEC [Concomitant]

REACTIONS (3)
  - Clostridium difficile infection [Unknown]
  - Disease recurrence [Unknown]
  - Diarrhoea [Unknown]
